FAERS Safety Report 7321952-6 (Version None)
Quarter: 2011Q1

REPORT INFORMATION
  Report Type: 
  Country: None (occurrence: None)
  Receive Date: 20110216
  Receipt Date: 20110204
  Transmission Date: 20110831
  Serious: Yes (Death)
  Sender: FDA-Public Use
  Company Number: UTC-005113

PATIENT
  Age: 61 Year
  Sex: Female
  Weight: 86.2 kg

DRUGS (4)
  1. COUMADIN [Concomitant]
  2. TRACLEER [Concomitant]
  3. REMODULIN [Suspect]
     Dosage: 59.04 UG/KG (0.041 UG/KG, 1 IN 1 MIN) INTRAVENOUS
     Route: 042
     Dates: start: 20090211, end: 20110202
  4. DIURETICS [Concomitant]

REACTIONS (1)
  - DEATH [None]
